FAERS Safety Report 4600543-1 (Version None)
Quarter: 2005Q1

REPORT INFORMATION
  Report Type: 
  Country: None (occurrence: None)
  Receive Date: 20050127
  Receipt Date: 20041028
  Transmission Date: 20050727
  Serious: No
  Sender: FDA-Public Use
  Company Number: USA041082614

PATIENT
  Age: 50 Year
  Sex: Female

DRUGS (8)
  1. STRATTERA [Suspect]
     Indication: ATTENTION DEFICIT/HYPERACTIVITY DISORDER
     Dosage: 60 MG DAY
     Dates: start: 20040901
  2. PROTONIX [Concomitant]
  3. PREMPRO [Concomitant]
  4. MICARDIS HCT [Concomitant]
  5. CARBIDOPA [Concomitant]
  6. QUININE SULFATE [Concomitant]
  7. PERCODAN [Concomitant]
  8. ALLERFRIN [Concomitant]

REACTIONS (2)
  - FEELING ABNORMAL [None]
  - UPPER RESPIRATORY TRACT INFECTION [None]
